FAERS Safety Report 5465367-4 (Version None)
Quarter: 2007Q3

REPORT INFORMATION
  Report Type: 
  Country: None (occurrence: None)
  Receive Date: 20070920
  Receipt Date: 20070905
  Transmission Date: 20080115
  Serious: Yes (Other)
  Sender: FDA-Public Use
  Company Number: 2007BI018873

PATIENT
  Age: 80 Year
  Sex: Female

DRUGS (1)
  1. ZEVALIN [Suspect]
     Indication: B-CELL SMALL LYMPHOCYTIC LYMPHOMA
     Dosage: ; IV
     Route: 042
     Dates: start: 19980311

REACTIONS (10)
  - ACUTE MYELOID LEUKAEMIA [None]
  - B-CELL SMALL LYMPHOCYTIC LYMPHOMA [None]
  - BLAST CELLS PRESENT [None]
  - BONE MARROW LEUKAEMIC CELL INFILTRATION [None]
  - CYTOGENETIC ABNORMALITY [None]
  - DISEASE PROGRESSION [None]
  - KARYOTYPE ANALYSIS ABNORMAL [None]
  - LYMPHOCYTIC LEUKAEMIA [None]
  - NO THERAPEUTIC RESPONSE [None]
  - PANCYTOPENIA [None]
